FAERS Safety Report 10080012 (Version 1)
Quarter: 2014Q2

REPORT INFORMATION
  Report Type: Spontaneous
  Country: US (occurrence: US)
  Receive Date: 20140415
  Receipt Date: 20140415
  Transmission Date: 20141212
  Serious: No
  Sender: FDA-Public Use
  Company Number: US-ASTRAZENECA-2014SE23205

PATIENT
  Age: 33 Year
  Sex: Female

DRUGS (3)
  1. PRILOSEC OTC [Suspect]
     Route: 048
     Dates: start: 20140308, end: 20140309
  2. ZOLOFT [Concomitant]
     Dosage: UNKNOWN
  3. METHYLDOPA [Concomitant]
     Dosage: UNKNOWN

REACTIONS (8)
  - Pollakiuria [Recovered/Resolved]
  - Urine output increased [Recovered/Resolved]
  - Diarrhoea [Recovered/Resolved]
  - Hepatic pain [Recovered/Resolved]
  - Gallbladder pain [Recovered/Resolved]
  - Faeces discoloured [Recovered/Resolved]
  - Abdominal pain upper [Recovered/Resolved]
  - Abdominal pain [Recovered/Resolved]
